FAERS Safety Report 6208575-7 (Version None)
Quarter: 2009Q2

REPORT INFORMATION
  Report Type: 
  Country: None (occurrence: None)
  Receive Date: 20090522
  Receipt Date: 20090219
  Transmission Date: 20091009
  Serious: No
  Sender: FDA-Public Use
  Company Number: 8043299

PATIENT
  Age: 38 Year
  Sex: Female
  Weight: 52.7 kg

DRUGS (6)
  1. CIMZIA [Suspect]
     Indication: CROHN'S DISEASE
     Dosage: 400 MG SC
     Route: 058
     Dates: start: 20090218
  2. PAXIL [Concomitant]
  3. DESYREL [Concomitant]
  4. DURAGESIC-100 [Concomitant]
  5. ESTRADIOL [Concomitant]
  6. VITAMIN B-12 [Concomitant]

REACTIONS (5)
  - ABDOMINAL PAIN [None]
  - DIARRHOEA [None]
  - HEADACHE [None]
  - PRURITUS [None]
  - RASH [None]
